FAERS Safety Report 8923392 (Version 1)
Quarter: 2012Q4

REPORT INFORMATION
  Report Type: Report from Study
  Country: CA (occurrence: CA)
  Receive Date: 20121123
  Receipt Date: 20121123
  Transmission Date: 20130627
  Serious: Yes (Hospitalization)
  Sender: FDA-Public Use
  Company Number: CA-JNJFOC-20121104928

PATIENT
  Sex: Male
  Weight: 78.93 kg

DRUGS (3)
  1. REMICADE [Suspect]
     Indication: COLITIS
     Route: 042
  2. REMICADE [Suspect]
     Indication: COLITIS
     Route: 042
     Dates: start: 20121106, end: 20121106
  3. PREDNISONE [Concomitant]
     Route: 065

REACTIONS (2)
  - Megacolon [Unknown]
  - Drug ineffective [Unknown]
